FAERS Safety Report 9311785 (Version 1)
Quarter: 2013Q2

REPORT INFORMATION
  Report Type: Spontaneous
  Country: DE (occurrence: DE)
  Receive Date: 20130528
  Receipt Date: 20130528
  Transmission Date: 20140414
  Serious: Yes (Hospitalization, Other)
  Sender: FDA-Public Use
  Company Number: GXKR2013DE001904

PATIENT
  Sex: Female
  Weight: 3.42 kg

DRUGS (1)
  1. LEVETIRACETAM [Suspect]
     Dosage: MATERNAL DOSE (0.-39.5 GW): 2X750MG/DAY
     Route: 064

REACTIONS (2)
  - Oxygen saturation decreased [Recovered/Resolved]
  - Foetal exposure during pregnancy [Unknown]
